FAERS Safety Report 5130529-2 (Version None)
Quarter: 2006Q4

REPORT INFORMATION
  Report Type: 
  Country: None (occurrence: None)
  Receive Date: 20061013
  Receipt Date: 20060925
  Transmission Date: 20070319
  Serious: Yes (Death, Hospitalization, Other)
  Sender: FDA-Public Use
  Company Number: US200609006545

PATIENT
  Age: 70 Year
  Sex: Female

DRUGS (2)
  1. HUMULIN N [Suspect]
     Indication: DIABETES MELLITUS
  2. HUMULIN R [Suspect]
     Indication: DIABETES MELLITUS

REACTIONS (5)
  - CARDIAC OPERATION [None]
  - DIAPHRAGMATIC INJURY [None]
  - IATROGENIC INJURY [None]
  - OVERDOSE [None]
  - WRONG DRUG ADMINISTERED [None]
